FAERS Safety Report 5648488-2 (Version None)
Quarter: 2008Q1

REPORT INFORMATION
  Report Type: 
  Country: None (occurrence: None)
  Receive Date: 20080229
  Receipt Date: 20080215
  Transmission Date: 20080703
  Serious: Yes (Hospitalization)
  Sender: FDA-Public Use
  Company Number: S08-FRA-00473-01

PATIENT
  Age: 42 Year
  Sex: Male
  Weight: 70 kg

DRUGS (1)
  1. ESCITALOPRAM [Suspect]
     Indication: DEPRESSION
     Dosage: 10 MG QD PO
     Route: 048
     Dates: start: 20070712, end: 20070101

REACTIONS (5)
  - ANXIETY [None]
  - BRIEF PSYCHOTIC DISORDER WITH MARKED STRESSORS [None]
  - HALLUCINATION [None]
  - MENTAL DISORDER [None]
  - PERSONALITY DISORDER [None]
